FAERS Safety Report 4943472-6 (Version None)
Quarter: 2006Q1

REPORT INFORMATION
  Report Type: 
  Country: None (occurrence: None)
  Receive Date: 20060314
  Receipt Date: 20060113
  Transmission Date: 20060701
  Serious: Yes (Death, Hospitalization)
  Sender: FDA-Public Use
  Company Number: US-AMGEN-US166168

PATIENT
  Sex: Female
  Weight: 59 kg

DRUGS (4)
  1. ENBREL [Suspect]
     Indication: RHEUMATOID ARTHRITIS
     Route: 058
     Dates: start: 20050401, end: 20051001
  2. METHOTREXATE [Concomitant]
     Indication: RHEUMATOID ARTHRITIS
     Dates: start: 20050101, end: 20051001
  3. PREDNISONE [Concomitant]
     Dates: start: 20051101
  4. FOLIC ACID [Concomitant]

REACTIONS (14)
  - ASTHENIA [None]
  - CEREBRAL INFARCTION [None]
  - CERVIX CANCER METASTATIC [None]
  - DEPRESSION [None]
  - HYPOXIA [None]
  - LYMPH NODE CANCER METASTATIC [None]
  - METASTASES TO CENTRAL NERVOUS SYSTEM [None]
  - PNEUMONIA PRIMARY ATYPICAL [None]
  - PULMONARY EMBOLISM [None]
  - PULMONARY TOXICITY [None]
  - RESPIRATORY FAILURE [None]
  - RHEUMATOID LUNG [None]
  - SQUAMOUS CELL CARCINOMA OF THE CERVIX [None]
  - TUMOUR EMBOLISM [None]
